FAERS Safety Report 24288440 (Version 1)
Quarter: 2024Q3

REPORT INFORMATION
  Report Type: Report from Study
  Country: PR (occurrence: PR)
  Receive Date: 20240906
  Receipt Date: 20240906
  Transmission Date: 20241017
  Serious: Yes (Hospitalization)
  Sender: ABBVIE
  Company Number: PR-ABBVIE-5842875

PATIENT
  Age: 57 Year
  Sex: Female
  Weight: 95.254 kg

DRUGS (1)
  1. HUMIRA [Suspect]
     Active Substance: ADALIMUMAB
     Indication: Colitis ulcerative
     Dosage: FORM STRENGTH: 40 MILLIGRAM
     Route: 058
     Dates: start: 20201218

REACTIONS (4)
  - Colitis ulcerative [Recovered/Resolved]
  - Weight decreased [Recovering/Resolving]
  - Blood glucose increased [Recovering/Resolving]
  - Gastrointestinal bacterial infection [Recovered/Resolved]

NARRATIVE: CASE EVENT DATE: 20240601
